FAERS Safety Report 13680832 (Version 3)
Quarter: 2017Q3

REPORT INFORMATION
  Report Type: Spontaneous
  Country: IT (occurrence: IT)
  Receive Date: 20170623
  Receipt Date: 20170908
  Transmission Date: 20171127
  Serious: Yes (Hospitalization)
  Sender: FDA-Public Use
  Company Number: IT-AMGEN-ITASP2017093654

PATIENT
  Age: 53 Year
  Sex: Female

DRUGS (8)
  1. DEXAMETHASONE PHOSPHATE [Concomitant]
     Active Substance: DEXAMETHASONE PHOSPHATE
     Dosage: UNK
  2. EMEND [Concomitant]
     Active Substance: APREPITANT
     Dosage: UNK (125MG+80MG)
  3. NEULASTA [Suspect]
     Active Substance: PEGFILGRASTIM
     Indication: PROPHYLAXIS
     Dosage: 6 MG, AS NECESSARY
     Route: 065
     Dates: start: 20170522, end: 20170522
  4. ONDANSETRONE ACCORD HEALTHCARE [Concomitant]
     Dosage: UNK
  5. EPIRUBICIN TEVA [Concomitant]
     Active Substance: EPIRUBICIN
     Indication: SOFT TISSUE SARCOMA
     Dosage: 100 MG, UNK
     Dates: start: 20170328
  6. HOLOXAN [Concomitant]
     Active Substance: IFOSFAMIDE
     Indication: SOFT TISSUE SARCOMA
     Dosage: 5040 MG, UNK
     Dates: start: 20170327
  7. UROMITEXAN [Concomitant]
     Active Substance: MESNA
     Dosage: UNK
  8. RANITIDINE. [Concomitant]
     Active Substance: RANITIDINE
     Dosage: UNK

REACTIONS (3)
  - Drug ineffective [Recovered/Resolved]
  - Product measured potency issue [Recovered/Resolved]
  - Neutropenia [Recovered/Resolved]

NARRATIVE: CASE EVENT DATE: 20170527
